FAERS Safety Report 5951338-8 (Version None)
Quarter: 2008Q4

REPORT INFORMATION
  Report Type: 
  Country: None (occurrence: None)
  Receive Date: 20081111
  Receipt Date: 20081111
  Transmission Date: 20090506
  Serious: No
  Sender: FDA-Public Use
  Company Number: None

PATIENT
  Age: 59 Year
  Sex: Female
  Weight: 95.2554 kg

DRUGS (1)
  1. KETOCONAZOLE [Suspect]
     Indication: TINEA INFECTION
     Dosage: 1-200MG TAB 1/DAY PO
     Route: 048
     Dates: start: 20081102, end: 20081105

REACTIONS (3)
  - PYREXIA [None]
  - RASH [None]
  - URTICARIA [None]
